FAERS Safety Report 5847803-4 (Version None)
Quarter: 2008Q3

REPORT INFORMATION
  Report Type: 
  Country: None (occurrence: None)
  Receive Date: 20080815
  Receipt Date: 20080815
  Transmission Date: 20090109
  Serious: No
  Sender: FDA-Public Use
  Company Number: None

PATIENT
  Age: 76 Month
  Sex: Male
  Weight: 20.8655 kg

DRUGS (1)
  1. ADDERALL XR 30 [Suspect]
     Indication: ATTENTION DEFICIT/HYPERACTIVITY DISORDER
     Dosage: 15 MG ONCE QD PO
     Route: 048

REACTIONS (2)
  - AGGRESSION [None]
  - IRRITABILITY [None]
